FAERS Safety Report 10476710 (Version 2)
Quarter: 2014Q4

REPORT INFORMATION
  Report Type: Report from Study
  Country: US (occurrence: US)
  Receive Date: 20140925
  Receipt Date: 20141015
  Transmission Date: 20150528
  Serious: Yes (Hospitalization, Other)
  Sender: FDA-Public Use
  Company Number: PHHY2014US119843

PATIENT
  Age: 41 Year
  Sex: Female
  Weight: 50 kg

DRUGS (14)
  1. MYCOPHENOLATE MOFETIL. [Suspect]
     Active Substance: MYCOPHENOLATE MOFETIL
     Indication: RENAL TRANSPLANT
     Dosage: 500 MG, BID
     Route: 048
     Dates: start: 20131010, end: 20131126
  2. MYCOPHENOLATE MOFETIL. [Suspect]
     Active Substance: MYCOPHENOLATE MOFETIL
     Dosage: 1000 MG, ONCE DAILY
     Route: 048
     Dates: start: 20131228, end: 20131229
  3. ACYCLOVIR. [Concomitant]
     Active Substance: ACYCLOVIR
     Indication: PRODUCT USED FOR UNKNOWN INDICATION
     Dosage: UNK
     Route: 065
     Dates: start: 20131010
  4. PANTOPRAZOLE [Concomitant]
     Active Substance: PANTOPRAZOLE SODIUM
     Indication: PRODUCT USED FOR UNKNOWN INDICATION
     Dosage: UNK
     Route: 065
     Dates: start: 20131011
  5. MYCOPHENOLATE MOFETIL. [Suspect]
     Active Substance: MYCOPHENOLATE MOFETIL
     Dosage: 1500 MG, UNK
     Route: 048
     Dates: start: 20140130, end: 20140130
  6. PREDNISONE. [Concomitant]
     Active Substance: PREDNISONE
     Indication: PRODUCT USED FOR UNKNOWN INDICATION
     Dosage: UNK
     Route: 065
     Dates: start: 20131014, end: 20131210
  7. MYCOPHENOLATE MOFETIL. [Suspect]
     Active Substance: MYCOPHENOLATE MOFETIL
     Dosage: 2000 MG, ONCE DAILY
     Route: 048
     Dates: start: 20131230, end: 20140129
  8. ATORVASTATIN [Concomitant]
     Active Substance: ATORVASTATIN
     Indication: PRODUCT USED FOR UNKNOWN INDICATION
     Dosage: UNK
     Route: 065
     Dates: start: 2012
  9. BASILIXIMAB [Suspect]
     Active Substance: BASILIXIMAB
     Indication: RENAL TRANSPLANT
     Dosage: 20 MG, TIMES TWO DOSES
     Route: 042
     Dates: start: 20131010, end: 20131013
  10. SULFAMETHOXAZOLE AND TRIMETHOPRIM [Concomitant]
     Active Substance: SULFAMETHOXAZOLE\TRIMETHOPRIM
     Indication: PRODUCT USED FOR UNKNOWN INDICATION
     Dosage: UNK
     Route: 065
     Dates: start: 20131011
  11. MYCOPHENOLATE MOFETIL. [Suspect]
     Active Substance: MYCOPHENOLATE MOFETIL
     Dosage: 1000 MG, DAILY
     Route: 048
     Dates: start: 20131204, end: 20131210
  12. MYCOPHENOLATE MOFETIL. [Suspect]
     Active Substance: MYCOPHENOLATE MOFETIL
     Dosage: 1000 MG, ONCE DAILY
     Route: 048
     Dates: start: 20140131
  13. CLOTRIMAZOLE. [Concomitant]
     Active Substance: CLOTRIMAZOLE
     Indication: PRODUCT USED FOR UNKNOWN INDICATION
     Dosage: UNK
     Route: 065
     Dates: start: 20131011
  14. MYCOPHENOLATE MOFETIL. [Suspect]
     Active Substance: MYCOPHENOLATE MOFETIL
     Dosage: 2000 MG, ONCE DAILY
     Route: 048
     Dates: start: 20131211, end: 20131227

REACTIONS (32)
  - Pyrexia [Recovered/Resolved]
  - Vomiting [Recovered/Resolved]
  - Band neutrophil percentage increased [Recovered/Resolved]
  - Hypertension [Unknown]
  - Drug ineffective [Recovered/Resolved]
  - Pleural effusion [Unknown]
  - Haematuria [Unknown]
  - Lactobacillus infection [Unknown]
  - Perirenal haematoma [Unknown]
  - Urinoma [Unknown]
  - Pelvic fluid collection [Unknown]
  - Tachycardia [Recovered/Resolved]
  - Flank pain [Recovered/Resolved]
  - White blood cell count increased [Unknown]
  - Kidney infection [Unknown]
  - Abdominal discomfort [Unknown]
  - Norovirus test positive [Unknown]
  - Back pain [Recovered/Resolved]
  - Hypophagia [Unknown]
  - Malaise [Unknown]
  - Headache [Unknown]
  - Kidney transplant rejection [Recovered/Resolved]
  - Abdominal pain lower [Recovered/Resolved]
  - Blood urea increased [Recovered/Resolved]
  - Perinephric collection [Unknown]
  - Glomerular filtration rate decreased [Unknown]
  - Urinary tract infection [Unknown]
  - Pulmonary oedema [Unknown]
  - Haemoglobin decreased [Unknown]
  - Diarrhoea [Recovered/Resolved]
  - Haematocrit decreased [Unknown]
  - Proteinuria [Unknown]

NARRATIVE: CASE EVENT DATE: 20131124
